FAERS Safety Report 13702392 (Version 1)
Quarter: 2017Q2

REPORT INFORMATION
  Report Type: Report from Study
  Country: None (occurrence: US)
  Receive Date: 20170629
  Receipt Date: 20170629
  Transmission Date: 20170830
  Serious: No
  Sender: FDA-Public Use
  Company Number: US-IPSEN BIOPHARMACEUTICALS, INC.-2015-7650

PATIENT
  Sex: Male

DRUGS (1)
  1. INCRELEX [Suspect]
     Active Substance: MECASERMIN
     Indication: INSULIN-LIKE GROWTH FACTOR DECREASED
     Dosage: 6ML
     Route: 058
     Dates: start: 20150515

REACTIONS (4)
  - Tremor [None]
  - Hyperhidrosis [None]
  - Feeling abnormal [None]
  - Pallor [None]
